FAERS Safety Report 23800361 (Version 1)
Quarter: 2024Q2

REPORT INFORMATION
  Report Type: Spontaneous
  Country: US (occurrence: None)
  Receive Date: 20240429
  Receipt Date: 20240429
  Transmission Date: 20240716
  Serious: Yes (Hospitalization)
  Sender: FDA-Public Use
  Company Number: None

PATIENT
  Age: 63 Year
  Sex: Female

DRUGS (3)
  1. MYCOPHENOLIC ACID [Suspect]
     Active Substance: MYCOPHENOLIC ACID
     Indication: Renal transplant
     Route: 048
     Dates: start: 20240202
  2. TACROLIMUS [Concomitant]
  3. TACROLIMUS A [Concomitant]

REACTIONS (1)
  - Blood pressure abnormal [None]

NARRATIVE: CASE EVENT DATE: 20240427
